FAERS Safety Report 20988904 (Version 1)
Quarter: 2022Q2

REPORT INFORMATION
  Report Type: Report from Study
  Country: CA (occurrence: CA)
  Receive Date: 20220621
  Receipt Date: 20220621
  Transmission Date: 20220721
  Serious: Yes (Death)
  Sender: FDA-Public Use
  Company Number: CA-002147023-PHHY2016CA103749

PATIENT

DRUGS (3)
  1. RUXOLITINIB [Suspect]
     Active Substance: RUXOLITINIB
     Indication: Myelofibrosis
     Dosage: UNK
     Route: 048
     Dates: start: 20160613
  2. RUXOLITINIB [Suspect]
     Active Substance: RUXOLITINIB
     Indication: Thalassaemia
     Dosage: UNK
     Route: 048
     Dates: start: 20160712
  3. RUXOLITINIB [Suspect]
     Active Substance: RUXOLITINIB
     Dosage: UNK (1 TAB AT BREAKFAST AND 1 AT SUPER TIME)
     Route: 065
     Dates: start: 20160727

REACTIONS (2)
  - Death [Fatal]
  - Malaise [Unknown]
